FAERS Safety Report 8482126 (Version 2)
Quarter: 2013Q4

REPORT INFORMATION
  Report Type: Report from Study
  Country: AU (occurrence: AU)
  Receive Date: 20120329
  Receipt Date: 20131011
  Transmission Date: 20140711
  Serious: No
  Sender: FDA-Public Use
  Company Number: AU-ROCHE-1049452

PATIENT
  Sex: Male
  Weight: 84 kg

DRUGS (4)
  1. ACTEMRA [Suspect]
     Indication: RHEUMATOID ARTHRITIS
     Route: 065
     Dates: start: 20110505
  2. CRESTOR [Concomitant]
  3. COLCHICINE [Concomitant]
     Indication: GOUT
  4. PREDNISOLONE [Concomitant]

REACTIONS (2)
  - Liver function test abnormal [Not Recovered/Not Resolved]
  - Jaundice [Not Recovered/Not Resolved]
